FAERS Safety Report 9770070 (Version 1)
Quarter: 2013Q4

REPORT INFORMATION
  Report Type: Spontaneous
  Country: US (occurrence: US)
  Receive Date: 20131218
  Receipt Date: 20131218
  Transmission Date: 20140711
  Serious: No
  Sender: FDA-Public Use
  Company Number: US-BAYER-2013-154529

PATIENT
  Age: 86 Year
  Sex: Female
  Weight: 68.03 kg

DRUGS (3)
  1. ALEVE CAPLET [Suspect]
     Indication: BACK PAIN
     Dosage: 2 DF, PRN
     Route: 048
  2. ALEVE CAPLET [Suspect]
     Indication: ARTHRALGIA
  3. BAYER ASPIRIN SUGAR FREE LOW DOSE ENTERIC [Concomitant]

REACTIONS (1)
  - Drug ineffective [None]
